FAERS Safety Report 11788034 (Version 4)
Quarter: 2016Q1

REPORT INFORMATION
  Report Type: Spontaneous
  Country: JP (occurrence: JP)
  Receive Date: 20151130
  Receipt Date: 20160115
  Transmission Date: 20160525
  Serious: Yes (Hospitalization)
  Sender: FDA-Public Use
  Company Number: PHJP2015JP021261

PATIENT
  Age: 82 Year
  Sex: Male

DRUGS (1)
  1. TEGRETOL [Suspect]
     Active Substance: CARBAMAZEPINE
     Indication: EPILEPSY
     Dosage: 200 MG, UNK
     Route: 048
     Dates: start: 2013, end: 20150520

REACTIONS (8)
  - Lupus-like syndrome [Recovering/Resolving]
  - Pancytopenia [Unknown]
  - Blood pressure decreased [Unknown]
  - Shock [Recovering/Resolving]
  - Cardiac tamponade [Recovering/Resolving]
  - Chest pain [Unknown]
  - Heart rate increased [Unknown]
  - Dyspnoea [Unknown]

NARRATIVE: CASE EVENT DATE: 20150515
